FAERS Safety Report 11141185 (Version 1)
Quarter: 2015Q2

REPORT INFORMATION
  Report Type: Spontaneous
  Country: US (occurrence: US)
  Receive Date: 20150525
  Receipt Date: 20150525
  Transmission Date: 20150821
  Serious: Yes (Other)
  Sender: FDA-Public Use
  Company Number: US-JNJFOC-20140906100

PATIENT
  Sex: Female
  Weight: 49.9 kg

DRUGS (1)
  1. RISPERDAL [Suspect]
     Active Substance: RISPERIDONE
     Indication: BIPOLAR DISORDER
     Route: 048
     Dates: start: 2004

REACTIONS (6)
  - Hypothyroidism [Not Recovered/Not Resolved]
  - Body mass index increased [Unknown]
  - Pulmonary embolism [Unknown]
  - Weight increased [Recovering/Resolving]
  - Skin disorder [Not Recovered/Not Resolved]
  - Sleep apnoea syndrome [Not Recovered/Not Resolved]

NARRATIVE: CASE EVENT DATE: 2004
